FAERS Safety Report 5213047-2 (Version None)
Quarter: 2007Q1

REPORT INFORMATION
  Report Type: 
  Country: None (occurrence: None)
  Receive Date: 20070118
  Receipt Date: 20070118
  Transmission Date: 20070707
  Serious: Yes (Death)
  Sender: FDA-Public Use
  Company Number: None

PATIENT
  Age: 68 Year
  Sex: Male
  Weight: 101.6057 kg

DRUGS (9)
  1. AMIODARONE HCL [Suspect]
     Indication: VASCULAR BYPASS GRAFT
     Dates: start: 20061027, end: 20061121
  2. CORDARONE [Suspect]
     Indication: HAEMATOMA
     Dates: start: 20061027, end: 20061121
  3. HEPARIN [Suspect]
     Indication: HAEMATOMA
  4. DIPRIVAN [Concomitant]
  5. XANAX [Concomitant]
  6. AMBIEN [Concomitant]
  7. MORPHINE DRIP [Concomitant]
  8. COLACE [Concomitant]
  9. INSULIN [Concomitant]

REACTIONS (3)
  - ACUTE RESPIRATORY DISTRESS SYNDROME [None]
  - HEPARIN-INDUCED THROMBOCYTOPENIA [None]
  - PULMONARY TOXICITY [None]
